FAERS Safety Report 4497825-3 (Version None)
Quarter: 2004Q4

REPORT INFORMATION
  Report Type: 
  Country: None (occurrence: None)
  Receive Date: 20041110
  Receipt Date: 20041008
  Transmission Date: 20050328
  Serious: Yes (Hospitalization)
  Sender: FDA-Public Use
  Company Number: US-GLAXOSMITHKLINE-A0530008A

PATIENT
  Age: 35 Year
  Sex: Female

DRUGS (5)
  1. ADVAIR [Suspect]
     Indication: ASTHMA
     Route: 055
     Dates: end: 20040820
  2. ALBUTEROL [Concomitant]
  3. PREDNISONE [Concomitant]
  4. MAGNESIUM [Concomitant]
  5. BLOOD PRESSURE MEDICATION [Concomitant]

REACTIONS (13)
  - BLOOD PRESSURE DECREASED [None]
  - BLOOD PRESSURE INCREASED [None]
  - CARDIAC VALVE DISEASE [None]
  - CHEST PAIN [None]
  - CORONARY ARTERY OCCLUSION [None]
  - COUGH [None]
  - DRUG INEFFECTIVE [None]
  - DYSPNOEA [None]
  - GASTRIC INFECTION [None]
  - HEART RATE INCREASED [None]
  - HYPOAESTHESIA [None]
  - OESOPHAGEAL INFECTION [None]
  - PULMONARY MYCOSIS [None]
